FAERS Safety Report 12460855 (Version 1)
Quarter: 2016Q2

REPORT INFORMATION
  Report Type: Spontaneous
  Country: UA (occurrence: UA)
  Receive Date: 20160613
  Receipt Date: 20160613
  Transmission Date: 20160815
  Serious: Yes (Hospitalization)
  Sender: FDA-Public Use
  Company Number: UA-PFIZER INC-2016290547

PATIENT
  Sex: Female

DRUGS (1)
  1. DOSTINEX [Suspect]
     Active Substance: CABERGOLINE
     Indication: BLOOD PROLACTIN INCREASED
     Dosage: 0.125 MG, 2X/WEEK

REACTIONS (3)
  - Insomnia [Unknown]
  - Irritability [Unknown]
  - Depression [Unknown]
